FAERS Safety Report 7717605-2 (Version None)
Quarter: 2011Q3

REPORT INFORMATION
  Report Type: 
  Country: None (occurrence: None)
  Receive Date: 20110830
  Receipt Date: 20110824
  Transmission Date: 20111222
  Serious: Yes (Hospitalization)
  Sender: FDA-Public Use
  Company Number: CA-BRISTOL-MYERS SQUIBB COMPANY-16007916

PATIENT
  Age: 33 Year
  Sex: Female

DRUGS (1)
  1. COUMADIN [Suspect]
     Dosage: INITIALLY GIVEN 7.2 MG,THEN REDUCED TO 6MG
     Route: 042

REACTIONS (1)
  - INFECTION [None]
